FAERS Safety Report 6767700-X (Version None)
Quarter: 2010Q2

REPORT INFORMATION
  Report Type: 
  Country: None (occurrence: None)
  Receive Date: 20100614
  Receipt Date: 20100608
  Transmission Date: 20101027
  Serious: Yes (Other)
  Sender: FDA-Public Use
  Company Number: CN-ROCHE-691947

PATIENT
  Age: 54 Year
  Sex: Female

DRUGS (2)
  1. PEGINTERFERON ALFA-2A [Suspect]
     Indication: HEPATITIS C
     Route: 058
     Dates: start: 20090610, end: 20100501
  2. RIBAVIRIN [Concomitant]
     Indication: HEPATITIS C
     Route: 048
     Dates: start: 20090610

REACTIONS (4)
  - HEPATIC CIRRHOSIS [None]
  - HYDROCHOLECYSTIS [None]
  - PLATELET COUNT DECREASED [None]
  - SPLENOMEGALY [None]
